FAERS Safety Report 7518102-X (Version None)
Quarter: 2011Q2

REPORT INFORMATION
  Report Type: 
  Country: None (occurrence: None)
  Receive Date: 20110523
  Receipt Date: 20110512
  Transmission Date: 20111010
  Serious: Yes (Hospitalization, Other)
  Sender: FDA-Public Use
  Company Number: 2010AC000372

PATIENT
  Sex: Female

DRUGS (24)
  1. LEVOTHROID [Concomitant]
  2. TYLENOL-500 [Concomitant]
  3. NEXIUM [Concomitant]
  4. HYDROCHLOROTHIAZIDE [Concomitant]
  5. BACTRIM [Concomitant]
  6. POTASSIUM CHLORIDE [Concomitant]
  7. CARBAMAZEPINE [Concomitant]
  8. AZMACORT [Concomitant]
  9. ESTRATEST [Concomitant]
  10. ASPIRIN [Concomitant]
  11. TORADOL [Concomitant]
  12. EFFEXOR [Concomitant]
  13. DIGOXIN [Suspect]
     Dates: start: 20060301, end: 20080601
  14. LYRICA [Concomitant]
  15. ALBUTEROL SULFATE AUTOHALER [Concomitant]
  16. RENEXA [Concomitant]
  17. PREMARIN [Concomitant]
  18. NITROGLYCERIN [Concomitant]
  19. DURATUSS [Concomitant]
  20. FUROSEMIDE [Concomitant]
  21. DIGOXIN [Suspect]
     Dosage: .125 MG, PO
     Route: 048
  22. ATENOLOL [Concomitant]
  23. AMITIZA [Concomitant]
  24. LUNESTA [Concomitant]

REACTIONS (13)
  - HEADACHE [None]
  - ACUTE SINUSITIS [None]
  - PALPITATIONS [None]
  - DIARRHOEA [None]
  - ANXIETY [None]
  - CARDIAC DISORDER [None]
  - ASTHENIA [None]
  - CHEST PAIN [None]
  - BLOOD PRESSURE DECREASED [None]
  - TRANSIENT ISCHAEMIC ATTACK [None]
  - SINUS BRADYCARDIA [None]
  - PAIN [None]
  - COUGH [None]
